FAERS Safety Report 4825477-9 (Version None)
Quarter: 2005Q4

REPORT INFORMATION
  Report Type: 
  Country: None (occurrence: None)
  Receive Date: 20051111
  Receipt Date: 20050721
  Transmission Date: 20060501
  Serious: Yes (Hospitalization)
  Sender: FDA-Public Use
  Company Number: US-MERCK-0507USA03353

PATIENT
  Age: 56 Year
  Sex: Male
  Weight: 56 kg

DRUGS (10)
  1. VIOXX [Suspect]
     Indication: ARTHRITIS
     Route: 048
     Dates: start: 20030421, end: 20030708
  2. VIOXX [Suspect]
     Route: 048
     Dates: start: 20001201, end: 20021101
  3. VIOXX [Suspect]
     Indication: OSTEOARTHRITIS
     Route: 048
     Dates: start: 20030421, end: 20030708
  4. VIOXX [Suspect]
     Route: 048
     Dates: start: 20001201, end: 20021101
  5. ANEXSIA [Concomitant]
     Indication: BACK PAIN
     Route: 048
     Dates: start: 19980101
  6. ANEXSIA [Concomitant]
     Indication: ARTHRITIS
     Route: 048
     Dates: start: 19980101
  7. RELAFEN [Concomitant]
     Indication: ARTHRITIS
     Route: 048
     Dates: start: 20010101, end: 20030401
  8. RELAFEN [Concomitant]
     Route: 048
     Dates: start: 20030601, end: 20030701
  9. RELAFEN [Concomitant]
     Route: 065
     Dates: start: 19980101
  10. FORADIL [Concomitant]
     Route: 055

REACTIONS (16)
  - ACUTE MYOCARDIAL INFARCTION [None]
  - ARTERIOSCLEROSIS CORONARY ARTERY [None]
  - ASTHMA [None]
  - BLOOD CHOLESTEROL INCREASED [None]
  - CHRONIC OBSTRUCTIVE PULMONARY DISEASE [None]
  - DYSPEPSIA [None]
  - HAEMOGLOBIN DECREASED [None]
  - HYPERTENSION [None]
  - HYPOTENSION [None]
  - PAIN [None]
  - PHARYNGITIS [None]
  - SLEEP DISORDER [None]
  - STOMACH DISCOMFORT [None]
  - STRESS [None]
  - SYNCOPE VASOVAGAL [None]
  - VENTRICULAR TACHYCARDIA [None]
